FAERS Safety Report 9482570 (Version 2)
Quarter: 2013Q3

REPORT INFORMATION
  Report Type: Spontaneous
  Country: BR (occurrence: BR)
  Receive Date: 20130828
  Receipt Date: 20130828
  Transmission Date: 20140515
  Serious: Yes (Hospitalization, Other)
  Sender: FDA-Public Use
  Company Number: BR-JNJFOC-20130813631

PATIENT
  Sex: Female
  Weight: 67 kg

DRUGS (12)
  1. REMICADE [Suspect]
     Indication: COLITIS
     Route: 042
     Dates: start: 20130413, end: 201304
  2. REMICADE [Suspect]
     Indication: COLITIS
     Route: 042
     Dates: start: 2006
  3. REMICADE [Suspect]
     Indication: RHEUMATOID ARTHRITIS
     Route: 042
     Dates: start: 20130413, end: 201304
  4. REMICADE [Suspect]
     Indication: RHEUMATOID ARTHRITIS
     Route: 042
     Dates: start: 2006
  5. PENTASA [Concomitant]
     Indication: GASTROINTESTINAL DISORDER
     Route: 065
  6. TECNOMET [Concomitant]
     Indication: RHEUMATIC DISORDER
     Route: 065
  7. FOLIN [Concomitant]
     Indication: GASTROINTESTINAL DISORDER
     Route: 065
  8. OS.CAL [Concomitant]
     Indication: MINERAL SUPPLEMENTATION
     Route: 065
  9. ARADOIS [Concomitant]
     Indication: BLOOD PRESSURE
     Route: 065
  10. CRESTOR [Concomitant]
     Indication: BLOOD PRESSURE
     Route: 065
  11. VITAMIN D [Concomitant]
     Indication: VITAMIN SUPPLEMENTATION
     Route: 065
  12. ALLOPURINOL [Concomitant]
     Indication: SWELLING
     Route: 065

REACTIONS (5)
  - Tuberculosis [Recovering/Resolving]
  - Dyspnoea [Recovered/Resolved]
  - Local swelling [Not Recovered/Not Resolved]
  - Arthralgia [Not Recovered/Not Resolved]
  - Blood pressure fluctuation [Not Recovered/Not Resolved]
